FAERS Safety Report 8118992-6 (Version None)
Quarter: 2012Q1

REPORT INFORMATION
  Report Type: 
  Country: None (occurrence: None)
  Receive Date: 20120207
  Receipt Date: 20120126
  Transmission Date: 20120608
  Serious: No
  Sender: FDA-Public Use
  Company Number: JP-ROCHE-1035535

PATIENT
  Sex: Female

DRUGS (4)
  1. TAMIFLU [Suspect]
     Dosage: PREGNANCY 32W
     Route: 048
     Dates: start: 20120125, end: 20120125
  2. RITODRINE HYDROCHLORIDE [Concomitant]
     Dosage: DOSAGE IS UNCERTAIN.
     Route: 065
  3. TAMIFLU [Suspect]
     Indication: INFLUENZA
     Dosage: PREGNANCY 32W
     Route: 048
     Dates: start: 20120124, end: 20120124
  4. ACETAMINOPHEN [Concomitant]
     Dosage: DOSAGE IS UNCERTAIN.
     Route: 065

REACTIONS (2)
  - MATERNAL EXPOSURE DURING PREGNANCY [None]
  - OVERDOSE [None]
